FAERS Safety Report 10392533 (Version 2)
Quarter: 2014Q3

REPORT INFORMATION
  Report Type: Report from Study
  Country: IT (occurrence: IT)
  Receive Date: 20140819
  Receipt Date: 20140923
  Transmission Date: 20150326
  Serious: Yes (Other)
  Sender: FDA-Public Use
  Company Number: PHHY2014IT099833

PATIENT
  Age: 72 Year
  Sex: Male

DRUGS (1)
  1. EXTAVIA [Suspect]
     Active Substance: INTERFERON BETA-1B
     Dosage: UNK UKN, QOD

REACTIONS (8)
  - Inflammation [Unknown]
  - Feeling hot [Unknown]
  - Drug ineffective [Unknown]
  - Loss of control of legs [Unknown]
  - Bone marrow disorder [Unknown]
  - Optic neuritis [Not Recovered/Not Resolved]
  - Sensory disturbance [Unknown]
  - Nervous system disorder [Unknown]
